FAERS Safety Report 20302812 (Version 1)
Quarter: 2022Q1

REPORT INFORMATION
  Report Type: Report from Study
  Country: US (occurrence: US)
  Receive Date: 20220106
  Receipt Date: 20220106
  Transmission Date: 20220423
  Serious: No
  Sender: FDA-Public Use
  Company Number: US-BIOVITRUM-2022US00060

PATIENT
  Sex: Female

DRUGS (3)
  1. SYNAGIS [Suspect]
     Active Substance: PALIVIZUMAB
     Indication: Antiviral prophylaxis
     Dosage: 100MG- MP0218?50MG- W004017
     Route: 030
     Dates: start: 20210817
  2. ALBUTEROL [Concomitant]
     Active Substance: ALBUTEROL
  3. TYLENOL [Concomitant]
     Active Substance: ACETAMINOPHEN

REACTIONS (7)
  - Cough [Unknown]
  - Illness [Unknown]
  - Nasal congestion [Unknown]
  - Dyspnoea [Unknown]
  - Respiratory syncytial virus infection [Unknown]
  - Bronchitis [Unknown]
  - Pyrexia [Unknown]
